FAERS Safety Report 4821032-5 (Version None)
Quarter: 2005Q4

REPORT INFORMATION
  Report Type: 
  Country: None (occurrence: None)
  Receive Date: 20051104
  Receipt Date: 20051104
  Transmission Date: 20060501
  Serious: Yes (Life-Threatening)
  Sender: FDA-Public Use
  Company Number: None

PATIENT
  Sex: Male
  Weight: 64 kg

DRUGS (1)
  1. ALIMTA [Suspect]
     Indication: LUNG NEOPLASM MALIGNANT
     Dosage: 910 MG X 1 DOSE IVB
     Route: 042
     Dates: start: 20051027

REACTIONS (6)
  - DYSPNOEA [None]
  - FEELING HOT [None]
  - INFUSION SITE REACTION [None]
  - LOSS OF CONSCIOUSNESS [None]
  - PRURITUS [None]
  - SINUS TACHYCARDIA [None]
